FAERS Safety Report 10112324 (Version 3)
Quarter: 2014Q2

REPORT INFORMATION
  Report Type: Spontaneous
  Country: IT (occurrence: IT)
  Receive Date: 20140425
  Receipt Date: 20140512
  Transmission Date: 20141212
  Serious: Yes (Death, Life-Threatening, Hospitalization)
  Sender: FDA-Public Use
  Company Number: IT-PFIZER INC-2014115353

PATIENT
  Age: 59 Year
  Sex: Female

DRUGS (5)
  1. CISPLATIN [Suspect]
     Indication: GASTRIC NEOPLASM
     Dosage: UNK, CYCLIC
  2. EPIRUBICIN HCL [Suspect]
     Indication: GASTRIC NEOPLASM
     Dosage: UNK, CYCLIC
  3. FLUOROURACIL [Suspect]
     Indication: GASTRIC NEOPLASM
     Dosage: 320 MG, DAILY
     Route: 042
     Dates: start: 20090715, end: 20090720
  4. METOCLOPRAMIDE [Concomitant]
  5. DEXAMETHASONE [Concomitant]

REACTIONS (13)
  - Multi-organ disorder [Fatal]
  - Hyperpyrexia [Fatal]
  - Diarrhoea [Fatal]
  - Abdominal pain [Fatal]
  - Odynophagia [Fatal]
  - Overdose [Fatal]
  - Skin discolouration [Not Recovered/Not Resolved]
  - Toxicity to various agents [Not Recovered/Not Resolved]
  - Thermal burn [Not Recovered/Not Resolved]
  - Neutropenia [Not Recovered/Not Resolved]
  - Thrombocytopenia [Not Recovered/Not Resolved]
  - Stomatitis [Not Recovered/Not Resolved]
  - Erythema [Not Recovered/Not Resolved]
